FAERS Safety Report 4505891-1 (Version None)
Quarter: 2004Q4

REPORT INFORMATION
  Report Type: 
  Country: None (occurrence: None)
  Receive Date: 20041025
  Receipt Date: 20040303
  Transmission Date: 20050328
  Serious: Yes (Other)
  Sender: FDA-Public Use
  Company Number: US-JNJFOC-20040301280

PATIENT
  Age: 26 Year
  Sex: Male
  Weight: 71.2147 kg

DRUGS (4)
  1. REMICADE [Suspect]
     Indication: CROHN'S DISEASE
     Dosage: 10 + 5 + 7.5MG/KG, INTRAVENOUS
     Route: 042
  2. MERCAPTOPURINE [Suspect]
     Indication: CROHN'S DISEASE
     Dosage: 125 MG, IN 1 DAY, ORAL
     Route: 048
  3. IBUPROFEN [Concomitant]
  4. VITAMIN B12 [Concomitant]

REACTIONS (1)
  - MALIGNANT MELANOMA [None]
